FAERS Safety Report 6786278-8 (Version None)
Quarter: 2010Q2

REPORT INFORMATION
  Report Type: 
  Country: None (occurrence: None)
  Receive Date: 20100623
  Receipt Date: 20100621
  Transmission Date: 20101027
  Serious: Yes (Death, Hospitalization)
  Sender: FDA-Public Use
  Company Number: GB-WYE-G05580010

PATIENT
  Sex: Male

DRUGS (2)
  1. GEMTUZUMAB OZOGAMICIN [Suspect]
     Indication: ACUTE MYELOID LEUKAEMIA
     Dosage: 1 DOSE EVERY 1 TOT
     Route: 042
     Dates: start: 20091207, end: 20091207
  2. ARA-C [Suspect]
     Indication: ACUTE MYELOID LEUKAEMIA
     Route: 058
     Dates: start: 20091207, end: 20091216

REACTIONS (2)
  - CEREBRAL HAEMORRHAGE [None]
  - NEUTROPENIC SEPSIS [None]
